FAERS Safety Report 6322548-5 (Version None)
Quarter: 2009Q3

REPORT INFORMATION
  Report Type: 
  Country: None (occurrence: None)
  Receive Date: 20090821
  Receipt Date: 20090821
  Transmission Date: 20100115
  Serious: Yes (Hospitalization)
  Sender: FDA-Public Use
  Company Number: None

PATIENT
  Age: 77 Year
  Sex: Male

DRUGS (1)
  1. EPTIFIBATIDE [Suspect]
     Indication: CORONARY ARTERIAL STENT INSERTION
     Dates: start: 20090421, end: 20090423

REACTIONS (3)
  - ANTI-PLATELET ANTIBODY POSITIVE [None]
  - MELAENA [None]
  - THROMBOCYTOPENIA [None]
